FAERS Safety Report 11053411 (Version 4)
Quarter: 2020Q4

REPORT INFORMATION
  Report Type: Spontaneous
  Country: US (occurrence: US)
  Receive Date: 20150421
  Receipt Date: 20201118
  Transmission Date: 20210113
  Serious: Yes (Hospitalization)
  Sender: FDA-Public Use
  Company Number: US-JNJFOC-20150214145

PATIENT
  Sex: Male

DRUGS (7)
  1. RISPERDAL [Suspect]
     Active Substance: RISPERIDONE
     Indication: ATTENTION DEFICIT HYPERACTIVITY DISORDER
     Route: 048
     Dates: start: 2005, end: 2008
  2. RISPERIDONE. [Suspect]
     Active Substance: RISPERIDONE
     Route: 048
     Dates: start: 20060216, end: 20060916
  3. RISPERIDONE. [Suspect]
     Active Substance: RISPERIDONE
     Route: 048
     Dates: start: 20050301
  4. RISPERIDONE. [Suspect]
     Active Substance: RISPERIDONE
     Indication: ATTENTION DEFICIT HYPERACTIVITY DISORDER
     Route: 048
     Dates: start: 2009, end: 2013
  5. RISPERIDONE. [Suspect]
     Active Substance: RISPERIDONE
     Route: 048
     Dates: start: 20050331, end: 20051012
  6. RISPERDAL [Suspect]
     Active Substance: RISPERIDONE
     Route: 048
     Dates: start: 200503, end: 200609
  7. RISPERIDONE. [Suspect]
     Active Substance: RISPERIDONE
     Route: 048
     Dates: start: 20051212

REACTIONS (3)
  - Weight increased [Unknown]
  - Gynaecomastia [Unknown]
  - Emotional distress [Unknown]
